FAERS Safety Report 10025443 (Version 1)
Quarter: 2014Q1

REPORT INFORMATION
  Report Type: Spontaneous
  Country: US (occurrence: US)
  Receive Date: 20140320
  Receipt Date: 20140320
  Transmission Date: 20141002
  Serious: No
  Sender: FDA-Public Use
  Company Number: US-009507513-1403USA002183

PATIENT
  Sex: Female

DRUGS (1)
  1. OXYTROL FOR WOMEN [Suspect]
     Indication: PRODUCT USED FOR UNKNOWN INDICATION
     Dosage: UNK, UNKNOWN
     Route: 062

REACTIONS (6)
  - Application site paraesthesia [Unknown]
  - Application site erosion [Unknown]
  - Application site pain [Unknown]
  - Application site burn [Unknown]
  - Application site scab [Unknown]
  - Application site discolouration [Unknown]
